FAERS Safety Report 12332346 (Version 1)
Quarter: 2016Q2

REPORT INFORMATION
  Report Type: Spontaneous
  Country: US (occurrence: US)
  Receive Date: 20160504
  Receipt Date: 20160504
  Transmission Date: 20160815
  Serious: No
  Sender: FDA-Public Use
  Company Number: US-ROCHE-1661347

PATIENT
  Sex: Female

DRUGS (3)
  1. ESBRIET [Suspect]
     Active Substance: PIRFENIDONE
     Dosage: TWO CAPSULES THREE TIMES DAILY (WEEK 2).
     Route: 048
  2. ESBRIET [Suspect]
     Active Substance: PIRFENIDONE
     Route: 048
     Dates: end: 20151231
  3. ESBRIET [Suspect]
     Active Substance: PIRFENIDONE
     Indication: IDIOPATHIC PULMONARY FIBROSIS
     Dosage: ONE CAPSULE THREE TIMES DAILY (WEEK 1).
     Route: 048

REACTIONS (5)
  - Abdominal pain upper [Unknown]
  - Insomnia [Unknown]
  - Abdominal discomfort [Unknown]
  - Decreased appetite [Unknown]
  - Constipation [Unknown]
